FAERS Safety Report 5297878-9 (Version None)
Quarter: 2007Q2

REPORT INFORMATION
  Report Type: 
  Country: None (occurrence: None)
  Receive Date: 20070416
  Receipt Date: 20070402
  Transmission Date: 20071010
  Serious: Yes (Disabling)
  Sender: FDA-Public Use
  Company Number: DE-AVENTIS-200710909DE

PATIENT
  Sex: Female

DRUGS (2)
  1. LANTUS [Suspect]
     Dosage: DOSE: NOPT REPORTED
     Route: 058
     Dates: start: 20070201
  2. ORAL ANTIDIABETICS [Concomitant]
     Dosage: DOSE: NOT REPORTED
     Route: 048

REACTIONS (1)
  - VISUAL DISTURBANCE [None]
